FAERS Safety Report 7217953-9 (Version None)
Quarter: 2011Q1

REPORT INFORMATION
  Report Type: 
  Country: None (occurrence: None)
  Receive Date: 20110110
  Receipt Date: 20110105
  Transmission Date: 20110831
  Serious: Yes (Hospitalization)
  Sender: FDA-Public Use
  Company Number: A0903335A

PATIENT
  Age: 60 Year
  Sex: Female

DRUGS (4)
  1. MEDICATION FOR HIGH BLOOD PRESSURE [Concomitant]
  2. LOVAZA [Suspect]
     Dosage: 2G TWICE PER DAY
     Route: 048
     Dates: start: 20101101
  3. MULTIVITAMIN [Concomitant]
  4. VIVELLE [Concomitant]

REACTIONS (1)
  - FATIGUE [None]
